FAERS Safety Report 12439877 (Version 3)
Quarter: 2016Q4

REPORT INFORMATION
  Report Type: Spontaneous
  Country: US (occurrence: US)
  Receive Date: 20160606
  Receipt Date: 20161011
  Transmission Date: 20170207
  Serious: Yes (Hospitalization, Disabling, Other)
  Sender: FDA-Public Use
  Company Number: US-009507513-1606USA001686

PATIENT
  Sex: Female

DRUGS (7)
  1. CALCIUM (UNSPECIFIED) [Concomitant]
     Active Substance: CALCIUM
     Indication: CALCIUM DEFICIENCY
     Dosage: 600 MG, UNK
     Dates: start: 2005
  2. FOSAMAX [Suspect]
     Active Substance: ALENDRONATE SODIUM
     Dosage: 70 MG, QW
     Route: 048
     Dates: start: 20110429, end: 20140501
  3. ALENDRONATE SODIUM. [Suspect]
     Active Substance: ALENDRONATE SODIUM
     Indication: OSTEOPOROSIS
     Dosage: 70MG/75CC
     Route: 048
     Dates: start: 20090808, end: 20101210
  4. FOSAMAX PLUS D [Suspect]
     Active Substance: ALENDRONATE SODIUM\CHOLECALCIFEROL
     Indication: OSTEOPOROSIS
     Dosage: UNK
     Route: 048
     Dates: start: 20070306, end: 20081211
  5. ALENDRONATE SODIUM. [Suspect]
     Active Substance: ALENDRONATE SODIUM
     Indication: OSTEOPOROSIS
     Dosage: 70 MG, UNK
     Route: 048
     Dates: start: 20081212, end: 20110331
  6. ALENDRONATE SODIUM. [Suspect]
     Active Substance: ALENDRONATE SODIUM
     Indication: OSTEOPOROSIS
     Dosage: 70 MG, UNK
     Route: 048
     Dates: start: 20140502, end: 20140613
  7. FOSAMAX [Suspect]
     Active Substance: ALENDRONATE SODIUM
     Indication: OSTEOPOROSIS
     Dosage: 70 MG, QW
     Route: 048
     Dates: start: 20060705

REACTIONS (19)
  - Emotional distress [Not Recovered/Not Resolved]
  - Vomiting [Unknown]
  - Hepatitis C [Unknown]
  - Gastrooesophageal reflux disease [Unknown]
  - Osteoporosis [Not Recovered/Not Resolved]
  - Femur fracture [Not Recovered/Not Resolved]
  - Low turnover osteopathy [Not Recovered/Not Resolved]
  - Vitamin D deficiency [Unknown]
  - Laceration [Unknown]
  - Back disorder [Unknown]
  - Foot fracture [Unknown]
  - Fall [Unknown]
  - Multiple fractures [Unknown]
  - Stress fracture [Unknown]
  - Nausea [Unknown]
  - Bone disorder [Unknown]
  - Anxiety [Not Recovered/Not Resolved]
  - Hypertension [Unknown]
  - Chronic kidney disease [Unknown]

NARRATIVE: CASE EVENT DATE: 200607
